FAERS Safety Report 5860787-8 (Version None)
Quarter: 2008Q3

REPORT INFORMATION
  Report Type: 
  Country: None (occurrence: None)
  Receive Date: 20080827
  Receipt Date: 20071115
  Transmission Date: 20090109
  Serious: No
  Sender: FDA-Public Use
  Company Number: US-ABBOTT-07P-163-0426032-00

PATIENT
  Sex: Male
  Weight: 78.996 kg

DRUGS (7)
  1. NIASPAN [Suspect]
     Indication: BLOOD CHOLESTEROL INCREASED
     Route: 048
     Dates: start: 20071116
  2. NIASPAN [Suspect]
     Route: 048
     Dates: end: 20071116
  3. NIASPAN [Suspect]
     Route: 048
     Dates: start: 19970101
  4. GEMFIBROZIL [Concomitant]
     Indication: DRUG USE FOR UNKNOWN INDICATION
  5. FISH OIL [Concomitant]
     Indication: DRUG USE FOR UNKNOWN INDICATION
  6. POLYCOSINOL [Concomitant]
     Indication: DRUG USE FOR UNKNOWN INDICATION
  7. ACETYLSALICYLIC ACID SRT [Concomitant]
     Indication: DRUG USE FOR UNKNOWN INDICATION

REACTIONS (6)
  - BLOOD URIC ACID INCREASED [None]
  - DRY MOUTH [None]
  - FLUSHING [None]
  - JOINT SWELLING [None]
  - NAUSEA [None]
  - PARAESTHESIA [None]
